FAERS Safety Report 9364400 (Version 1)
Quarter: 2013Q2

REPORT INFORMATION
  Report Type: Spontaneous
  Country: US (occurrence: None)
  Receive Date: 20130619
  Receipt Date: 20130619
  Transmission Date: 20140414
  Serious: Yes (Other)
  Sender: FDA-Public Use
  Company Number: 2013P1007220

PATIENT
  Age: 75 Year
  Sex: Female

DRUGS (1)
  1. DOXYCLINE [Suspect]
     Indication: CELLULITIS
     Route: 048

REACTIONS (5)
  - Hyperaesthesia [None]
  - Burns second degree [None]
  - Cellulitis [None]
  - Skin ulcer [None]
  - Photosensitivity reaction [None]
